FAERS Safety Report 4531793-0 (Version None)
Quarter: 2004Q4

REPORT INFORMATION
  Report Type: 
  Country: None (occurrence: None)
  Receive Date: 20041220
  Receipt Date: 20041214
  Transmission Date: 20050328
  Serious: Yes (Hospitalization)
  Sender: FDA-Public Use
  Company Number: JP-MERCK-0412USA02001

PATIENT
  Age: 75 Year
  Sex: Female

DRUGS (4)
  1. FOSAMAX [Suspect]
     Indication: OSTEOPOROSIS
     Route: 048
     Dates: start: 20040901, end: 20041211
  2. LIVACT [Concomitant]
     Indication: HEPATIC CIRRHOSIS
     Route: 065
  3. ROCALTROL [Concomitant]
     Route: 065
  4. MAGNESIUM OXIDE [Concomitant]
     Route: 065

REACTIONS (2)
  - HEPATIC FAILURE [None]
  - WHITE BLOOD CELL COUNT DECREASED [None]
